FAERS Safety Report 6350134-X (Version None)
Quarter: 2009Q3

REPORT INFORMATION
  Report Type: 
  Country: None (occurrence: None)
  Receive Date: 20090911
  Receipt Date: 20090622
  Transmission Date: 20100115
  Serious: No
  Sender: FDA-Public Use
  Company Number: US-ABBOTT-06P-163-0350178-00

PATIENT
  Sex: Female
  Weight: 63.56 kg

DRUGS (7)
  1. HUMIRA [Suspect]
     Indication: ARTHRITIS
     Route: 058
     Dates: start: 20061031
  2. PREDNISONE [Concomitant]
     Indication: ARTHRITIS
     Route: 048
  3. GABAPENTIN [Concomitant]
     Indication: PAIN
     Route: 048
  4. LORAZEPAM [Concomitant]
     Indication: PROPHYLAXIS
     Route: 048
  5. AMITRIPTYLINE HYDROCHLORIDE [Concomitant]
     Indication: PROPHYLAXIS
     Route: 048
  6. VICODIN [Concomitant]
     Indication: PAIN
     Dosage: TOTAL DAILY DOSE: 60-80MG (UNIT DOSE: 10 MG PRN QD (6-8)
     Route: 048
  7. FLUOXETINE HCL [Concomitant]
     Indication: ANTIDEPRESSANT THERAPY
     Route: 048

REACTIONS (2)
  - INCORRECT DOSE ADMINISTERED [None]
  - WRONG TECHNIQUE IN DRUG USAGE PROCESS [None]
